FAERS Safety Report 5926494-8 (Version None)
Quarter: 2008Q4

REPORT INFORMATION
  Report Type: 
  Country: None (occurrence: None)
  Receive Date: 20081022
  Receipt Date: 20081016
  Transmission Date: 20090506
  Serious: Yes (Other)
  Sender: FDA-Public Use
  Company Number: PHEH2008US08089

PATIENT
  Sex: Female
  Weight: 87.528 kg

DRUGS (13)
  1. RECLAST [Suspect]
     Indication: OSTEOPOROSIS
     Dosage: 5 MG, ONCE/SINGLE
     Dates: start: 20071219
  2. NEXIUM [Concomitant]
  3. SYNTHROID [Concomitant]
     Dosage: UNK
  4. METOPROLOL TARTRATE [Concomitant]
     Dosage: UNK
  5. LASIX [Concomitant]
     Dosage: UNK
  6. COUMADIN [Concomitant]
     Indication: DEEP VEIN THROMBOSIS
     Dosage: UNK
  7. K-DUR [Concomitant]
  8. DARVOCET-N 100 [Concomitant]
  9. CRESTOR [Concomitant]
  10. MYSOLINE [Concomitant]
  11. XANAX [Concomitant]
  12. ELAVIL [Concomitant]
     Dosage: UNK, UNK
  13. RESTORIL [Concomitant]
     Dosage: UNK

REACTIONS (7)
  - DENTAL CARIES [None]
  - DRY MOUTH [None]
  - TOOTH DISCOLOURATION [None]
  - TOOTH DISORDER [None]
  - TOOTH EXTRACTION [None]
  - TOOTH INJURY [None]
  - TOOTH LOSS [None]
